FAERS Safety Report 9772039 (Version 1)
Quarter: 2013Q4

REPORT INFORMATION
  Report Type: Spontaneous
  Country: JP (occurrence: JP)
  Receive Date: 20131219
  Receipt Date: 20131219
  Transmission Date: 20140711
  Serious: Yes (Hospitalization)
  Sender: FDA-Public Use
  Company Number: JP-MPIJNJ-2013JNJ001340

PATIENT
  Sex: 0

DRUGS (14)
  1. VELCADE [Suspect]
     Indication: PLASMA CELL MYELOMA
     Dosage: 1.3 MG/M2, UNK
     Route: 058
     Dates: start: 20131029, end: 20131108
  2. DEXAMETHASONE [Concomitant]
     Indication: PLASMA CELL MYELOMA
     Dosage: 20 MG, UNK
     Route: 048
     Dates: start: 20131029, end: 20131113
  3. LYM2127399 [Concomitant]
     Indication: PLASMA CELL MYELOMA
     Dosage: 300 MG, UNK
     Route: 042
     Dates: start: 20131029, end: 20131029
  4. AMLODIPINE [Concomitant]
     Indication: HYPERTENSION
     Dosage: 10 MG, UNK
     Dates: start: 20130705
  5. ZOVIRAX                            /00587301/ [Concomitant]
     Dosage: 200 MG, UNK
     Dates: start: 20130705
  6. TAKEPRON [Concomitant]
     Dosage: 15 MG, UNK
     Route: 048
     Dates: start: 20130705
  7. PANTOSIN [Concomitant]
     Indication: CONSTIPATION
     Dosage: 100 MG, UNK
     Dates: start: 20131029
  8. MAGMITT [Concomitant]
     Indication: CONSTIPATION
     Dosage: 110 MG, UNK
     Route: 048
     Dates: start: 20131029
  9. BAKTAR [Concomitant]
     Dosage: UNK
     Route: 048
     Dates: start: 20130705
  10. OXYNORM [Concomitant]
     Indication: PAIN
     Dosage: 5 MG, PRN
     Dates: start: 20130715
  11. OXYNORM [Concomitant]
     Dosage: 10 MG, PRN
     Dates: start: 20131030
  12. OXYNORM [Concomitant]
     Dosage: 10 MG, UNK
     Dates: start: 20130715
  13. OXYNORM [Concomitant]
     Dosage: 20 MG, UNK
     Route: 048
     Dates: start: 20131101
  14. BIO THREE                          /01960101/ [Concomitant]
     Dosage: UNK
     Route: 048
     Dates: start: 20130705

REACTIONS (2)
  - Nerve compression [Not Recovered/Not Resolved]
  - Disease progression [Unknown]
